FAERS Safety Report 19884210 (Version 1)
Quarter: 2021Q3

REPORT INFORMATION
  Report Type: Spontaneous
  Country: US (occurrence: US)
  Receive Date: 20210923
  Receipt Date: 20210923
  Transmission Date: 20211014
  Serious: No
  Sender: FDA-Public Use
  Company Number: None

PATIENT
  Age: 86 Year
  Sex: Male

DRUGS (1)
  1. ACETAMINOPHEN (ACETAMINOPHEN 500MG TAB) [Suspect]
     Active Substance: ACETAMINOPHEN
     Indication: PAIN
     Route: 048
     Dates: start: 20190501, end: 20210818

REACTIONS (9)
  - Hidradenitis [None]
  - Lethargy [None]
  - Escherichia infection [None]
  - Metabolic acidosis [None]
  - Drug level increased [None]
  - Urinary tract infection [None]
  - Tachypnoea [None]
  - Nutritional condition abnormal [None]
  - Pathogen resistance [None]

NARRATIVE: CASE EVENT DATE: 20210818
